FAERS Safety Report 19437094 (Version 4)
Quarter: 2022Q2

REPORT INFORMATION
  Report Type: Report from Study
  Country: NL (occurrence: NL)
  Receive Date: 20210618
  Receipt Date: 20220504
  Transmission Date: 20220721
  Serious: Yes (Death, Life-Threatening, Hospitalization, Disabling, Other)
  Sender: FDA-Public Use
  Company Number: NL-PFIZER INC-2021708892

PATIENT
  Age: 74 Year
  Sex: Male
  Weight: 94.4 kg

DRUGS (3)
  1. CRIZOTINIB [Suspect]
     Active Substance: CRIZOTINIB
     Indication: Non-small cell lung cancer metastatic
     Dosage: 250 MG, 2X/DAY
     Route: 048
     Dates: start: 20200714, end: 20201228
  2. CRIZOTINIB [Suspect]
     Active Substance: CRIZOTINIB
     Dosage: 250 MG, 1X/DAY
     Route: 048
     Dates: start: 20201229, end: 20210124
  3. CRIZOTINIB [Suspect]
     Active Substance: CRIZOTINIB
     Dosage: 200 MG, 2X/DAY
     Route: 048
     Dates: start: 20210125, end: 20210426

REACTIONS (5)
  - Cerebral infarction [Fatal]
  - Neurological symptom [Not Recovered/Not Resolved]
  - Hip arthroplasty [Unknown]
  - Postoperative wound infection [Unknown]
  - Pneumonitis [Unknown]

NARRATIVE: CASE EVENT DATE: 20201229
